FAERS Safety Report 9351926 (Version 2)
Quarter: 2013Q4

REPORT INFORMATION
  Report Type: Spontaneous
  Country: US (occurrence: US)
  Receive Date: 20130617
  Receipt Date: 20131009
  Transmission Date: 20140711
  Serious: Yes (Hospitalization)
  Sender: FDA-Public Use
  Company Number: US-BIOGENIDEC-2013BI051911

PATIENT
  Age: 49 Year
  Sex: Female

DRUGS (13)
  1. TYSABRI [Suspect]
     Indication: MULTIPLE SCLEROSIS
     Route: 042
     Dates: start: 20110511, end: 20130403
  2. ASPIRIN [Concomitant]
  3. VITAMIN B12 [Concomitant]
  4. FERROUS SULFATE [Concomitant]
  5. FUROSEMIDE [Concomitant]
  6. GABAPENTIN [Concomitant]
  7. HYDRALAZINE [Concomitant]
  8. LANTUS [Concomitant]
  9. HUMALOG [Concomitant]
  10. LABETALOL [Concomitant]
  11. LACTULOSE [Concomitant]
  12. PRILOSEC [Concomitant]
  13. SIMVASTATIN [Concomitant]

REACTIONS (2)
  - Sepsis [Recovered/Resolved]
  - Hypoglycaemia [Recovered/Resolved]
